FAERS Safety Report 15620660 (Version 1)
Quarter: 2018Q4

REPORT INFORMATION
  Report Type: Spontaneous
  Country: DE (occurrence: DE)
  Receive Date: 20181115
  Receipt Date: 20181115
  Transmission Date: 20190205
  Serious: Yes (Other)
  Sender: FDA-Public Use
  Company Number: DE-ROCHE-2214678

PATIENT
  Age: 75 Year
  Sex: Male

DRUGS (1)
  1. ACTILYSE [Suspect]
     Active Substance: ALTEPLASE
     Indication: ISCHAEMIC STROKE
     Route: 042

REACTIONS (6)
  - Cerebral haemorrhage [Unknown]
  - Hypertension [Unknown]
  - Atrial fibrillation [Unknown]
  - Hypercholesterolaemia [Unknown]
  - Cerebral microhaemorrhage [Unknown]
  - Cerebral amyloid angiopathy [Unknown]
